FAERS Safety Report 6017149-2 (Version None)
Quarter: 2008Q4

REPORT INFORMATION
  Report Type: 
  Country: None (occurrence: None)
  Receive Date: 20081223
  Receipt Date: 20081217
  Transmission Date: 20090506
  Serious: Yes (Hospitalization)
  Sender: FDA-Public Use
  Company Number: JP-BRISTOL-MYERS SQUIBB COMPANY-14440218

PATIENT
  Age: 68 Year
  Sex: Male

DRUGS (7)
  1. KENACORT [Suspect]
     Indication: JOINT EFFUSION
     Dosage: RECEIVED ONCE
     Route: 014
     Dates: start: 20081023, end: 20081023
  2. ASPIRIN [Suspect]
     Route: 048
     Dates: end: 20081023
  3. ARTZ [Suspect]
  4. ADALAT CC [Concomitant]
     Route: 048
     Dates: end: 20081023
  5. LIPITOR [Concomitant]
     Route: 048
  6. TANATRIL [Concomitant]
     Route: 048
     Dates: end: 20081023
  7. FLIVAS [Concomitant]
     Route: 048

REACTIONS (1)
  - HAEMARTHROSIS [None]
